FAERS Safety Report 10371013 (Version 1)
Quarter: 2014Q3

REPORT INFORMATION
  Report Type: Spontaneous
  Country: US (occurrence: US)
  Receive Date: 20140808
  Receipt Date: 20140808
  Transmission Date: 20150326
  Serious: No
  Sender: FDA-Public Use
  Company Number: US-ENDO PHARMACEUTICALS INC.-CLOZ20140008

PATIENT
  Age: 47 Year
  Sex: Male

DRUGS (1)
  1. CLONAZEPAM 0.5MG [Suspect]
     Active Substance: CLONAZEPAM
     Indication: ANXIETY
     Route: 048
     Dates: start: 201303

REACTIONS (3)
  - Staphylococcal infection [Unknown]
  - Dermatitis contact [Unknown]
  - Cellulitis [Unknown]

NARRATIVE: CASE EVENT DATE: 201312
